FAERS Safety Report 8586505 (Version 3)
Quarter: 2015Q1

REPORT INFORMATION
  Report Type: Spontaneous
  Country: US (occurrence: US)
  Receive Date: 20120530
  Receipt Date: 20150224
  Transmission Date: 20150721
  Serious: Yes (Hospitalization, Congenital Anomaly, Other)
  Sender: FDA-Public Use
  Company Number: US-GLAXOSMITHKLINE-A0979334A

PATIENT
  Age: 0 Day
  Sex: Male
  Weight: 3.8 kg

DRUGS (1)
  1. PAXIL [Suspect]
     Active Substance: PAROXETINE HYDROCHLORIDE
     Indication: DEPRESSION
     Dosage: 40 MG, QD
     Route: 064
     Dates: start: 199706

REACTIONS (2)
  - Foetal exposure during pregnancy [Unknown]
  - Hydronephrosis [Unknown]

NARRATIVE: CASE EVENT DATE: 19990312
